FAERS Safety Report 5632705-9 (Version None)
Quarter: 2008Q1

REPORT INFORMATION
  Report Type: 
  Country: None (occurrence: None)
  Receive Date: 20080220
  Receipt Date: 20080212
  Transmission Date: 20080703
  Serious: Yes (Hospitalization)
  Sender: FDA-Public Use
  Company Number: JP-PFIZER INC-2008014151

PATIENT
  Age: 74 Year
  Sex: Female

DRUGS (9)
  1. LIPITOR [Suspect]
     Route: 048
     Dates: start: 20080108, end: 20080125
  2. FAMOTIDINE [Suspect]
     Route: 048
     Dates: start: 20080108, end: 20080125
  3. NEUROVITAN [Suspect]
     Dosage: TEXT:2 DF-FREQ:DAILY
     Route: 048
  4. PANALDINE [Suspect]
     Route: 048
     Dates: start: 20080108, end: 20080125
  5. ASPIRIN [Concomitant]
     Dosage: TEXT:200 MG DAILY
     Route: 048
     Dates: start: 20080108, end: 20080125
  6. CARVEDILOL [Concomitant]
     Dosage: TEXT:5 MG DAILY
     Route: 048
     Dates: start: 20080108, end: 20080125
  7. PLETAL [Concomitant]
     Dosage: TEXT:200 MG DAILY
     Route: 048
     Dates: start: 20080108, end: 20080110
  8. GLIBENCLAMIDE [Concomitant]
     Dosage: TEXT:1.25 MG DAILY
     Route: 048
  9. VOGLIBOSE [Concomitant]
     Dosage: TEXT:0.6 MG DAILY
     Route: 048

REACTIONS (1)
  - LUNG DISORDER [None]
